FAERS Safety Report 5315126-8 (Version None)
Quarter: 2007Q2

REPORT INFORMATION
  Report Type: 
  Country: None (occurrence: None)
  Receive Date: 20070502
  Receipt Date: 20070420
  Transmission Date: 20071010
  Serious: Yes (Death, Other)
  Sender: FDA-Public Use
  Company Number: US-PFIZER INC-2006122881

PATIENT
  Sex: Male
  Weight: 90.7 kg

DRUGS (4)
  1. CELEBREX [Suspect]
     Indication: OSTEOARTHRITIS
     Dates: start: 20030121, end: 20050111
  2. VIOXX [Suspect]
     Indication: OSTEOARTHRITIS
     Dates: start: 20030401, end: 20041007
  3. CARDURA [Concomitant]
     Indication: HYPERTENSION
  4. PROSCAR [Concomitant]
     Indication: BENIGN PROSTATIC HYPERPLASIA

REACTIONS (2)
  - DEATH [None]
  - ISCHAEMIC STROKE [None]
